FAERS Safety Report 5163037-3 (Version None)
Quarter: 2006Q4

REPORT INFORMATION
  Report Type: 
  Country: None (occurrence: None)
  Receive Date: 20061201
  Receipt Date: 20020102
  Transmission Date: 20070319
  Serious: Yes (Hospitalization)
  Sender: FDA-Public Use
  Company Number: FR-BOEHRINGER INGELHEIM PHARMACEUTICALS, INC.-2002-FF-00003FF

PATIENT
  Sex: Female

DRUGS (6)
  1. VIRAMUNE [Suspect]
     Indication: HIV INFECTION
     Route: 064
  2. RETROVIR [Suspect]
     Indication: HIV INFECTION
     Route: 064
  3. RETROVIR [Suspect]
     Route: 048
  4. RETROVIR [Suspect]
     Indication: HUMAN IMMUNODEFICIENCY VIRUS TRANSMISSION
     Route: 064
     Dates: start: 19980902, end: 19980902
  5. EPIVIR [Suspect]
     Indication: HIV INFECTION
     Route: 064
  6. EPIVIR [Suspect]
     Indication: HUMAN IMMUNODEFICIENCY VIRUS TRANSMISSION
     Route: 048

REACTIONS (6)
  - ANAEMIA [None]
  - ANAEMIA NEONATAL [None]
  - DRUG EXPOSURE DURING PREGNANCY [None]
  - NEUTROPENIA [None]
  - NEUTROPENIA NEONATAL [None]
  - NUCLEAR MAGNETIC RESONANCE IMAGING ABNORMAL [None]
